FAERS Safety Report 8084928-X (Version None)
Quarter: 2012Q1

REPORT INFORMATION
  Report Type: 
  Country: None (occurrence: None)
  Receive Date: 20120128
  Receipt Date: 20110321
  Transmission Date: 20120608
  Serious: No
  Sender: FDA-Public Use
  Company Number: US-ABBOTT-11P-163-0713029-00

PATIENT
  Sex: Female
  Weight: 54.48 kg

DRUGS (11)
  1. ENTOCORT EC [Concomitant]
     Indication: CROHN'S DISEASE
     Route: 048
  2. OXYCODONE HCL [Concomitant]
     Indication: PAIN
     Dosage: MAX OF 8/DAY AS NEEDED
     Route: 048
  3. ATIVAN [Concomitant]
     Indication: ANXIETY
     Dosage: 0.5MG (1/2 TAB) DAILY
     Route: 048
  4. CYMBALTA [Concomitant]
     Indication: FIBROMYALGIA
     Route: 048
  5. PREVACID [Concomitant]
     Indication: ULCER
     Route: 048
  6. CHOELSTYRAMINE [Concomitant]
     Indication: GALLBLADDER DISORDER
     Dosage: ONE CAPFUL IN WATER DRINK DAILY
     Route: 048
  7. CYCLOBENZAPRINE [Concomitant]
     Indication: FIBROMYALGIA
     Route: 048
  8. ASACOL [Concomitant]
     Indication: CROHN'S DISEASE
     Route: 048
  9. HUMIRA [Suspect]
     Indication: CROHN'S DISEASE
     Route: 058
     Dates: start: 20110101
  10. LOMOTIL [Concomitant]
     Indication: DIARRHOEA
     Route: 048
  11. ATENOLOL [Concomitant]
     Indication: FAMILIAL TREMOR
     Route: 048

REACTIONS (3)
  - WRONG TECHNIQUE IN DRUG USAGE PROCESS [None]
  - INJECTION SITE PAIN [None]
  - INCORRECT DOSE ADMINISTERED [None]
